FAERS Safety Report 4888962-X (Version None)
Quarter: 2005Q4

REPORT INFORMATION
  Report Type: 
  Country: None (occurrence: None)
  Receive Date: 20051216
  Receipt Date: 20050725
  Transmission Date: 20060501
  Serious: No
  Sender: FDA-Public Use
  Company Number: USA0507103633

PATIENT
  Sex: Male

DRUGS (5)
  1. CIALIS [Suspect]
     Dosage: 20 MG
     Dates: start: 20050701
  2. LEXAPRO [Concomitant]
  3. SYNTHROID [Concomitant]
  4. WELLBUTRIN [Concomitant]
  5. LIPITOR [Concomitant]

REACTIONS (1)
  - DRUG INEFFECTIVE [None]
